FAERS Safety Report 9175449 (Version 1)
Quarter: 2013Q1

REPORT INFORMATION
  Report Type: Spontaneous
  Country: JP (occurrence: JP)
  Receive Date: 20130320
  Receipt Date: 20130320
  Transmission Date: 20140127
  Serious: Yes (Hospitalization)
  Sender: FDA-Public Use
  Company Number: JP-ROCHE-1203169

PATIENT
  Age: 70 Year
  Sex: Female

DRUGS (3)
  1. KYTRIL [Suspect]
     Indication: PRODUCT USED FOR UNKNOWN INDICATION
     Dosage: ABOUT THE 63RD 3 MG X 9 TIMES (9WX7)
     Route: 041
     Dates: start: 20121220, end: 20130307
  2. DIPHENHYDRAMINE HYDROCHLORIDE [Suspect]
     Indication: PRODUCT USED FOR UNKNOWN INDICATION
     Dosage: DRUG REPORTED AS : RESTAMIN, DOSAGE IS UNCERTAIN
     Route: 048
  3. PACLITAXEL [Concomitant]
     Indication: BREAST CANCER
     Dosage: UNCERTAIN DOSAGE AND THE TENTH COURSE
     Route: 041

REACTIONS (1)
  - Shock [Recovered/Resolved]
